FAERS Safety Report 4753385-0 (Version None)
Quarter: 2005Q3

REPORT INFORMATION
  Report Type: 
  Country: None (occurrence: None)
  Receive Date: 20050823
  Receipt Date: 20050810
  Transmission Date: 20060218
  Serious: Yes (Hospitalization)
  Sender: FDA-Public Use
  Company Number: USA0508105054

PATIENT
  Age: 31 Year
  Sex: Male

DRUGS (2)
  1. INSULIN [Suspect]
     Indication: DIABETES MELLITUS INSULIN-DEPENDENT
     Dates: start: 19820101, end: 19820101
  2. INSULIN [Suspect]
     Indication: DIABETES MELLITUS INSULIN-DEPENDENT
     Dates: start: 19820101, end: 19820101

REACTIONS (4)
  - DIABETIC COMA [None]
  - DRUG HYPERSENSITIVITY [None]
  - ERYTHEMA [None]
  - MALAISE [None]
